FAERS Safety Report 17135600 (Version 1)
Quarter: 2019Q4

REPORT INFORMATION
  Report Type: Report from Study
  Country: None (occurrence: CA)
  Receive Date: 20191210
  Receipt Date: 20191210
  Transmission Date: 20200122
  Serious: Yes (Other)
  Sender: FDA-Public Use
  Company Number: CA-ABBVIE-19K-028-2680851-00

PATIENT
  Sex: Male

DRUGS (1)
  1. HUMIRA [Suspect]
     Active Substance: ADALIMUMAB
     Indication: COLITIS ULCERATIVE
     Route: 058
     Dates: start: 20160817

REACTIONS (6)
  - Mass [Not Recovered/Not Resolved]
  - Malaise [Not Recovered/Not Resolved]
  - Frequent bowel movements [Not Recovered/Not Resolved]
  - Faeces hard [Not Recovered/Not Resolved]
  - Faeces soft [Not Recovered/Not Resolved]
  - Haemorrhoids [Not Recovered/Not Resolved]

NARRATIVE: CASE EVENT DATE: 2019
